FAERS Safety Report 20771610 (Version 1)
Quarter: 2022Q2

REPORT INFORMATION
  Report Type: Spontaneous
  Country: GB (occurrence: GB)
  Receive Date: 20220430
  Receipt Date: 20220430
  Transmission Date: 20220720
  Serious: Yes (Other)
  Sender: FDA-Public Use
  Company Number: None

PATIENT
  Age: 36 Year
  Sex: Female
  Weight: 68 kg

DRUGS (1)
  1. CLONAZEPAM [Suspect]
     Active Substance: CLONAZEPAM
     Indication: Anxiety
     Dosage: UNIT DOSE ; 1 MG
     Route: 048
     Dates: start: 20220316

REACTIONS (4)
  - Angioedema [Not Recovered/Not Resolved]
  - Urticaria [Not Recovered/Not Resolved]
  - Miliaria [Recovered/Resolved]
  - Rash [Recovered/Resolved]

NARRATIVE: CASE EVENT DATE: 20220326
